FAERS Safety Report 7822226-7 (Version None)
Quarter: 2011Q4

REPORT INFORMATION
  Report Type: 
  Country: None (occurrence: None)
  Receive Date: 20111018
  Receipt Date: 20111011
  Transmission Date: 20120403
  Serious: Yes (Other)
  Sender: FDA-Public Use
  Company Number: VE-ELI_LILLY_AND_COMPANY-VE201110002947

PATIENT
  Age: 27 Year
  Sex: Female

DRUGS (3)
  1. HUMALOG MIX 75/25 [Suspect]
     Dosage: 22 IU, EACH MORNING
     Dates: start: 20110808
  2. HUMALOG [Suspect]
     Dosage: 4 IU, QD
     Dates: start: 20110808
  3. HUMALOG MIX 75/25 [Suspect]
     Dosage: 12 IU, EACH EVENING
     Dates: start: 20110808

REACTIONS (3)
  - MATERNAL EXPOSURE DURING PREGNANCY [None]
  - ABORTION SPONTANEOUS [None]
  - HYPOGLYCAEMIA [None]
